FAERS Safety Report 7372953-3 (Version None)
Quarter: 2011Q1

REPORT INFORMATION
  Report Type: 
  Country: None (occurrence: None)
  Receive Date: 20110324
  Receipt Date: 20110310
  Transmission Date: 20110831
  Serious: Yes (Hospitalization, Other)
  Sender: FDA-Public Use
  Company Number: US-BAYER-201033876NA

PATIENT
  Sex: Female
  Weight: 52 kg

DRUGS (5)
  1. YASMIN [Suspect]
     Indication: PRODUCT USED FOR UNKNOWN INDICATION
     Dosage: UNK UNK, UNK
     Route: 048
     Dates: start: 20090701
  2. FISH OIL [Concomitant]
     Dosage: UNK UNK, QD
     Route: 048
  3. YAZ [Suspect]
     Indication: PRODUCT USED FOR UNKNOWN INDICATION
     Dosage: UNK UNK, UNK
     Route: 048
     Dates: start: 20090701
  4. CALCIUM [Concomitant]
     Dosage: 600 MG, QD
     Route: 048
  5. MULTI-VITAMIN [Concomitant]
     Dosage: UNK UNK, QD
     Route: 048

REACTIONS (1)
  - PULMONARY EMBOLISM [None]
